FAERS Safety Report 8302819-3 (Version None)
Quarter: 2012Q2

REPORT INFORMATION
  Report Type: 
  Country: None (occurrence: None)
  Receive Date: 20120420
  Receipt Date: 20120411
  Transmission Date: 20120825
  Serious: Yes (Congenital Anomaly, Other)
  Sender: FDA-Public Use
  Company Number: US-FRI-1000029730

PATIENT
  Sex: Male

DRUGS (3)
  1. LEXAPRO [Suspect]
     Indication: DEPRESSION
     Dosage: 40 MG
     Route: 064
     Dates: end: 20110301
  2. POTASSIUM CHLORIDE [Concomitant]
     Dates: end: 20110301
  3. LASIX [Concomitant]
     Dates: end: 20110301

REACTIONS (3)
  - UNEVALUABLE EVENT [None]
  - CONGENITAL CARDIOVASCULAR ANOMALY [None]
  - CARDIAC MURMUR [None]
